FAERS Safety Report 24741991 (Version 1)
Quarter: 2024Q4

REPORT INFORMATION
  Report Type: Spontaneous
  Country: BD (occurrence: BD)
  Receive Date: 20241217
  Receipt Date: 20241217
  Transmission Date: 20250114
  Serious: Yes (Hospitalization)
  Sender: MEDEXUS PHARMA
  Company Number: BD-MEDEXUS PHARMA, INC.-2024MED00491

PATIENT
  Age: 35 Year
  Sex: Female

DRUGS (1)
  1. METHOTREXATE [Suspect]
     Active Substance: METHOTREXATE
     Dosage: 10 MG, 1X/DAY, 12 DAYS [ALSO REPORTED AS 14 DAYS] MISTAKENLY
     Route: 048
     Dates: start: 202402, end: 202403

REACTIONS (17)
  - Conjunctival hyperaemia [Recovered/Resolved]
  - Periorbital oedema [Recovered/Resolved]
  - Dysphagia [Recovered/Resolved]
  - Dehydration [Recovered/Resolved]
  - Mucosal ulceration [Recovered/Resolved]
  - Gastrointestinal haemorrhage [Recovered/Resolved]
  - Skin ulcer [Recovered/Resolved]
  - Anaemia [Recovered/Resolved]
  - Mucosal inflammation [Recovered/Resolved]
  - Pancytopenia [Recovered/Resolved]
  - Hepatotoxicity [Recovered/Resolved]
  - Acute kidney injury [Recovered/Resolved]
  - Erythema [Recovered/Resolved]
  - Dyspnoea [Recovered/Resolved]
  - Skin injury [Recovered/Resolved]
  - Accidental overdose [Recovered/Resolved]
  - Toxicity to various agents [Recovered/Resolved]

NARRATIVE: CASE EVENT DATE: 20240101
